FAERS Safety Report 20683156 (Version 2)
Quarter: 2022Q2

REPORT INFORMATION
  Report Type: Other
  Country: ZA (occurrence: ZA)
  Receive Date: 20220407
  Receipt Date: 20220429
  Transmission Date: 20220720
  Serious: Yes (Other)
  Sender: FDA-Public Use
  Company Number: ZA-MACLEODS PHARMA UK LTD-MAC2022035074

PATIENT

DRUGS (3)
  1. LAMIVUDINE [Suspect]
     Active Substance: LAMIVUDINE
     Indication: Product used for unknown indication
     Dosage: UNK, 1 COURSE PRIOR TO THE CONCEPTION, FIRST EARLIEST EXPOSURE TRIMESTER
     Route: 065
     Dates: start: 20171002
  2. TENOFOVIR [Suspect]
     Active Substance: TENOFOVIR
     Indication: Product used for unknown indication
     Dosage: UNK, 1 COURSE PRIOR TO THE CONCEPTION, FIRST EARLIEST EXPOSURE TRIMESTER
     Route: 065
     Dates: start: 20171002
  3. TIVICAY [Suspect]
     Active Substance: DOLUTEGRAVIR SODIUM
     Indication: Product used for unknown indication
     Dosage: UNK, 1 COURSE PRIOR TO THE CONCEPTION, FIRST EARLIEST EXPOSURE TRIMESTER
     Route: 065
     Dates: start: 20180606

REACTIONS (2)
  - Stillbirth [Unknown]
  - Maternal exposure during pregnancy [Unknown]
